FAERS Safety Report 15984997 (Version 2)
Quarter: 2019Q1

REPORT INFORMATION
  Report Type: Spontaneous
  Country: US (occurrence: US)
  Receive Date: 20190220
  Receipt Date: 20190304
  Transmission Date: 20190418
  Serious: No
  Sender: FDA-Public Use
  Company Number: US-BAYER-2019-036070

PATIENT
  Age: 69 Year
  Sex: Male

DRUGS (16)
  1. CYANOCOBALAMIN. [Concomitant]
     Active Substance: CYANOCOBALAMIN
  2. TURMERIC [CURCUMA LONGA] [Concomitant]
  3. ACETAMINOPHEN. [Concomitant]
     Active Substance: ACETAMINOPHEN
  4. NAC [ACETYLCYSTEINE] [Concomitant]
  5. TRINTELLIX [Concomitant]
     Active Substance: VORTIOXETINE HYDROBROMIDE
  6. MINERALS NOS;VITAMINS NOS [Concomitant]
     Active Substance: MINERALS\VITAMINS
  7. CELECOXIB. [Concomitant]
     Active Substance: CELECOXIB
  8. BETASERON [Suspect]
     Active Substance: INTERFERON BETA-1B
     Indication: FATIGUE
     Dosage: UNK
     Route: 058
     Dates: start: 201902
  9. CLOMIPRAMINE [Concomitant]
     Active Substance: CLOMIPRAMINE
  10. METOPROLOL SUCCINATE. [Concomitant]
     Active Substance: METOPROLOL SUCCINATE
  11. BETASERON [Suspect]
     Active Substance: INTERFERON BETA-1B
     Indication: CHRONIC FATIGUE SYNDROME
     Dosage: 0.063 MG, QOD
     Dates: start: 20190226
  12. ANTIOXIDANT FORMULA [Concomitant]
  13. IRON [Concomitant]
     Active Substance: IRON
  14. ATORVASTATIN [Concomitant]
     Active Substance: ATORVASTATIN
  15. EQUILIBRANT [Concomitant]
  16. ABILIFY [Concomitant]
     Active Substance: ARIPIPRAZOLE

REACTIONS (5)
  - Product use in unapproved indication [Not Recovered/Not Resolved]
  - Chills [Recovered/Resolved]
  - Headache [Recovered/Resolved]
  - Off label use [Not Recovered/Not Resolved]
  - Myalgia [Recovered/Resolved]

NARRATIVE: CASE EVENT DATE: 20190219
